FAERS Safety Report 25762260 (Version 1)
Quarter: 2025Q3

REPORT INFORMATION
  Report Type: Spontaneous
  Country: CN (occurrence: CN)
  Receive Date: 20250904
  Receipt Date: 20250904
  Transmission Date: 20251020
  Serious: Yes (Life-Threatening)
  Sender: PFIZER
  Company Number: CN-PFIZER INC-PV202500106246

PATIENT
  Age: 60 Year
  Sex: Female

DRUGS (5)
  1. EPIRUBICIN HYDROCHLORIDE [Suspect]
     Active Substance: EPIRUBICIN HYDROCHLORIDE
     Indication: Nodal marginal zone B-cell lymphoma
     Dosage: 80 MG, 1X/DAY
     Route: 041
     Dates: start: 20250722, end: 20250722
  2. RITUXIMAB [Concomitant]
     Active Substance: RITUXIMAB
     Indication: Nodal marginal zone B-cell lymphoma
     Dates: start: 20250721, end: 20250721
  3. CYCLOPHOSPHAMIDE [Concomitant]
     Active Substance: CYCLOPHOSPHAMIDE
     Indication: Nodal marginal zone B-cell lymphoma
     Dates: start: 20250722, end: 20250722
  4. VINCRISTINE [Concomitant]
     Active Substance: VINCRISTINE
     Indication: Nodal marginal zone B-cell lymphoma
     Dates: start: 20250722, end: 20250722
  5. PREDNISONE ACETATE [Concomitant]
     Active Substance: PREDNISONE ACETATE
     Indication: Nodal marginal zone B-cell lymphoma
     Dosage: 50 MG, 2X/DAY
     Dates: start: 20250722, end: 20250726

REACTIONS (1)
  - Cardiac arrest [Recovering/Resolving]

NARRATIVE: CASE EVENT DATE: 20250826
